FAERS Safety Report 10387929 (Version 1)
Quarter: 2014Q1

REPORT INFORMATION
  Report Type: Spontaneous
  Country: US (occurrence: None)
  Receive Date: 20140306
  Receipt Date: 20140306
  Transmission Date: 20141002
  Serious: Yes (Other)
  Sender: FDA-Public Use
  Company Number: 163-21880-13110185

PATIENT
  Age: 68 Year
  Sex: Female

DRUGS (1)
  1. REVLIMID (LENALIDOMIDE) (25 MILLIGRAM, CAPSULES) [Suspect]
     Indication: PLASMA CELL MYELOMA
     Dosage: 14 IN 21 D?
     Route: 048
     Dates: start: 20131002, end: 2013

REACTIONS (5)
  - Red blood cell count decreased [None]
  - Hypoaesthesia [None]
  - Paraesthesia [None]
  - Fatigue [None]
  - Full blood count decreased [None]
